FAERS Safety Report 6449780-4 (Version None)
Quarter: 2009Q4

REPORT INFORMATION
  Report Type: 
  Country: None (occurrence: None)
  Receive Date: 20091120
  Receipt Date: 20091111
  Transmission Date: 20100525
  Serious: Yes (Hospitalization)
  Sender: FDA-Public Use
  Company Number: DK-GENENTECH-294372

PATIENT
  Sex: Male

DRUGS (2)
  1. BEVACIZUMAB [Suspect]
     Indication: GLIOMA
     Dosage: 740 MG, Q2W
     Route: 042
     Dates: start: 20081106, end: 20090609
  2. IRINOTECAN HCL [Suspect]
     Indication: GLIOMA
     Dosage: 245 MG, Q2W
     Route: 042
     Dates: start: 20081106, end: 20090609

REACTIONS (2)
  - CEREBRAL INFARCTION [None]
  - CONVULSION [None]
